FAERS Safety Report 16840563 (Version 1)
Quarter: 2019Q3

REPORT INFORMATION
  Report Type: Spontaneous
  Country: SG (occurrence: SG)
  Receive Date: 20190923
  Receipt Date: 20190923
  Transmission Date: 20191005
  Serious: Yes (Other)
  Sender: FDA-Public Use
  Company Number: SG-GUERBET-SG-20190029

PATIENT
  Age: 2 Year
  Sex: Male

DRUGS (2)
  1. FUROSEMIDE. [Concomitant]
     Active Substance: FUROSEMIDE
     Indication: NUCLEAR MAGNETIC RESONANCE IMAGING RENAL
     Route: 042
     Dates: start: 20190806, end: 20190806
  2. DOTAREM [Suspect]
     Active Substance: GADOTERATE MEGLUMINE
     Indication: NUCLEAR MAGNETIC RESONANCE IMAGING RENAL
     Route: 042
     Dates: start: 20190806, end: 20190806

REACTIONS (4)
  - Hypotension [Unknown]
  - Anaphylactic reaction [Unknown]
  - Flushing [Unknown]
  - Oxygen saturation decreased [Unknown]

NARRATIVE: CASE EVENT DATE: 20190806
